FAERS Safety Report 4684726-0 (Version None)
Quarter: 2005Q2

REPORT INFORMATION
  Report Type: 
  Country: None (occurrence: None)
  Receive Date: 20050531
  Receipt Date: 20050314
  Transmission Date: 20051028
  Serious: Yes (Hospitalization)
  Sender: FDA-Public Use
  Company Number: USA050188473

PATIENT
  Sex: Male

DRUGS (1)
  1. ZYPREXA [Suspect]
     Indication: SCHIZOPHRENIA
     Dosage: 15 MG DAY

REACTIONS (4)
  - CHEST PAIN [None]
  - LIMB INJURY [None]
  - PULMONARY EMBOLISM [None]
  - THROMBOSIS [None]
